FAERS Safety Report 21503351 (Version 1)
Quarter: 2022Q4

REPORT INFORMATION
  Report Type: Spontaneous
  Country: CN (occurrence: CN)
  Receive Date: 20221025
  Receipt Date: 20221025
  Transmission Date: 20230113
  Serious: Yes (Other)
  Sender: FDA-Public Use
  Company Number: CN-PFIZER INC-PV202200088129

PATIENT
  Age: 28 Year
  Sex: Male

DRUGS (4)
  1. IRINOTECAN HYDROCHLORIDE [Suspect]
     Active Substance: IRINOTECAN HYDROCHLORIDE
     Dosage: 300 MG, 1X/DAY
     Route: 041
     Dates: start: 20220924, end: 20220924
  2. FLUOROURACIL [Suspect]
     Active Substance: FLUOROURACIL
     Dosage: 500 MG, 1X/DAY
     Route: 041
     Dates: start: 20220924, end: 20220924
  3. FLUOROURACIL [Suspect]
     Active Substance: FLUOROURACIL
     Dosage: 4 G, ONCE EVERY 3 DAYS
     Dates: start: 20220924, end: 20220927
  4. LEUCOVORIN CALCIUM [Concomitant]
     Active Substance: LEUCOVORIN CALCIUM
     Indication: Neoplasm
     Dosage: 600 MG, ONCE EVERY 3 DAYS
     Route: 041
     Dates: start: 20220924, end: 20220924

REACTIONS (2)
  - White blood cell count decreased [Recovering/Resolving]
  - Blood fibrinogen decreased [Recovering/Resolving]

NARRATIVE: CASE EVENT DATE: 20221009
